FAERS Safety Report 9676474 (Version 1)
Quarter: 2013Q4

REPORT INFORMATION
  Report Type: Spontaneous
  Country: US (occurrence: US)
  Receive Date: 20131107
  Receipt Date: 20131107
  Transmission Date: 20140711
  Serious: No
  Sender: FDA-Public Use
  Company Number: US-PFIZER INC-2013317505

PATIENT
  Age: 9 Decade
  Sex: Male

DRUGS (1)
  1. LYRICA [Suspect]
     Indication: POST HERPETIC NEURALGIA
     Dosage: 200 MG, DAILY

REACTIONS (3)
  - Asthenia [Unknown]
  - Fatigue [Unknown]
  - Movement disorder [Unknown]
